FAERS Safety Report 8339926-5 (Version None)
Quarter: 2012Q2

REPORT INFORMATION
  Report Type: 
  Country: None (occurrence: None)
  Receive Date: 20120507
  Receipt Date: 20090120
  Transmission Date: 20120825
  Serious: No
  Sender: FDA-Public Use
  Company Number: US-TEVA-2009000267

PATIENT
  Sex: Male
  Weight: 103.97 kg

DRUGS (3)
  1. TREANDA [Suspect]
     Route: 042
     Dates: start: 20090119
  2. TREANDA [Suspect]
     Indication: CHRONIC LYMPHOCYTIC LEUKAEMIA
     Route: 042
     Dates: start: 20080101
  3. UNKNOWN MEDICATION FOR HYPERTENSION [Concomitant]
     Indication: HYPERTENSION

REACTIONS (1)
  - RASH [None]
